FAERS Safety Report 19257912 (Version 1)
Quarter: 2021Q2

REPORT INFORMATION
  Report Type: Spontaneous
  Country: US (occurrence: US)
  Receive Date: 20210513
  Receipt Date: 20210513
  Transmission Date: 20210717
  Serious: Yes (Other)
  Sender: FDA-Public Use
  Company Number: None

PATIENT
  Age: 59 Year
  Sex: Female

DRUGS (1)
  1. GLATIRAMER PFS 40MG/ML [Suspect]
     Active Substance: GLATIRAMER ACETATE
     Indication: MULTIPLE SCLEROSIS
     Dosage: OTHER FREQUENCY:OTHER;?
     Route: 058
     Dates: start: 20210426, end: 20210429

REACTIONS (3)
  - Drug hypersensitivity [None]
  - Product substitution issue [None]
  - Therapy interrupted [None]

NARRATIVE: CASE EVENT DATE: 20210429
